FAERS Safety Report 24655605 (Version 1)
Quarter: 2024Q4

REPORT INFORMATION
  Report Type: Spontaneous
  Country: CZ (occurrence: CZ)
  Receive Date: 20241123
  Receipt Date: 20241123
  Transmission Date: 20250114
  Serious: Yes (Other)
  Sender: ACCORD
  Company Number: CZ-EMA-DD-20241023-7482645-081832

PATIENT
  Age: 75 Year
  Sex: Male

DRUGS (8)
  1. CARBOPLATIN [Suspect]
     Active Substance: CARBOPLATIN
     Indication: Lung adenocarcinoma stage IV
     Dosage: 4 CYCLES IN COMBINATION WITH PEMETREXED AND BEVACIZUMAB AS FIRST-LINE CHEMOTHERAPY
     Dates: start: 202107, end: 202109
  2. PEMETREXED [Suspect]
     Active Substance: PEMETREXED
     Indication: Lung adenocarcinoma stage IV
     Dosage: 4 CYCLES
     Dates: start: 202107, end: 202109
  3. ATEZOLIZUMAB [Suspect]
     Active Substance: ATEZOLIZUMAB
     Indication: Adenocarcinoma
     Dates: end: 202202
  4. BEVACIZUMAB [Suspect]
     Active Substance: BEVACIZUMAB
     Indication: Lung adenocarcinoma stage IV
     Dosage: 4 CYCLES IN COMBINATION WITH CARBOPLATIN AND CARBOPLATIN AS FIRST-LINE CHEMOTHERAPY
     Dates: start: 202107, end: 202109
  5. ERLOTINIB HYDROCHLORIDE [Suspect]
     Active Substance: ERLOTINIB HYDROCHLORIDE
     Indication: Neoplasm
     Dosage: FOURTH-LINE CHEMOTHERAPY
     Dates: start: 2022, end: 2022
  6. DOCETAXEL [Concomitant]
     Active Substance: DOCETAXEL
  7. SOTORASIB [Concomitant]
     Active Substance: SOTORASIB
  8. PEMETREXED [Suspect]
     Active Substance: PEMETREXED
     Indication: Lung adenocarcinoma stage IV
     Dates: start: 202002

REACTIONS (6)
  - Neutropenia [Recovered/Resolved]
  - Disease progression [Unknown]
  - Metastases to lung [Unknown]
  - Drug ineffective [Unknown]
  - Diarrhoea [Unknown]
  - Rash [Unknown]

NARRATIVE: CASE EVENT DATE: 20210101
